FAERS Safety Report 9720808 (Version 2)
Quarter: 2013Q4

REPORT INFORMATION
  Report Type: Spontaneous
  Country: VE (occurrence: VE)
  Receive Date: 20131129
  Receipt Date: 20131226
  Transmission Date: 20140711
  Serious: Yes (Death, Hospitalization)
  Sender: FDA-Public Use
  Company Number: VE-AMGEN-VENSP2013084368

PATIENT
  Age: 60 Year
  Sex: Male

DRUGS (1)
  1. ENBREL [Suspect]
     Indication: RHEUMATOID ARTHRITIS
     Dosage: 25 MG, 2X/WEEK
     Route: 058
     Dates: start: 20121217, end: 20130905

REACTIONS (3)
  - Respiratory arrest [Fatal]
  - Pulmonary oedema [Not Recovered/Not Resolved]
  - Drug ineffective [Recovered/Resolved]
